FAERS Safety Report 13628729 (Version 3)
Quarter: 2017Q3

REPORT INFORMATION
  Report Type: Report from Study
  Country: IE (occurrence: IE)
  Receive Date: 20170607
  Receipt Date: 20170822
  Transmission Date: 20171127
  Serious: Yes (Other)
  Sender: FDA-Public Use
  Company Number: IE-JNJFOC-20170601405

PATIENT
  Sex: Male

DRUGS (4)
  1. BISOPROLOL [Concomitant]
     Active Substance: BISOPROLOL
     Route: 065
  2. STELARA [Suspect]
     Active Substance: USTEKINUMAB
     Indication: PSORIATIC ARTHROPATHY
     Route: 058
     Dates: start: 20160831
  3. BURINEX [Concomitant]
     Active Substance: BUMETANIDE
     Route: 065
  4. NUPRIN [Concomitant]
     Active Substance: IBUPROFEN
     Route: 065

REACTIONS (2)
  - Inflammatory marker increased [Recovering/Resolving]
  - Renal impairment [Not Recovered/Not Resolved]
